FAERS Safety Report 13360745 (Version 2)
Quarter: 2017Q1

REPORT INFORMATION
  Report Type: Spontaneous
  Country: GB (occurrence: GB)
  Receive Date: 20170322
  Receipt Date: 20170331
  Transmission Date: 20170429
  Serious: Yes (Other)
  Sender: FDA-Public Use
  Company Number: GB-ALLERGAN-1710617US

PATIENT
  Age: 55 Year
  Sex: Female

DRUGS (3)
  1. CITALOPRAM HYDROBROMIDE - BP [Suspect]
     Active Substance: CITALOPRAM HYDROBROMIDE
     Indication: ANXIETY
     Dosage: 30 MG, QD
     Route: 048
     Dates: start: 20170206
  2. CITALOPRAM HYDROBROMIDE - BP [Suspect]
     Active Substance: CITALOPRAM HYDROBROMIDE
     Indication: DEPRESSION
     Dosage: 30 MG, QD
     Route: 048
     Dates: end: 20170217
  3. CITALOPRAM AUROBINDO PHARMA [Suspect]
     Active Substance: CITALOPRAM HYDROBROMIDE
     Indication: DEPRESSION
     Dosage: 30 MG, QD
     Route: 048

REACTIONS (4)
  - Suicidal ideation [Recovered/Resolved]
  - Vision blurred [Recovered/Resolved]
  - Depressed mood [Recovered/Resolved]
  - Drug ineffective [Unknown]

NARRATIVE: CASE EVENT DATE: 20170206
